FAERS Safety Report 8610095-7 (Version None)
Quarter: 2012Q3

REPORT INFORMATION
  Report Type: 
  Country: None (occurrence: None)
  Receive Date: 20120822
  Receipt Date: 20120815
  Transmission Date: 20120928
  Serious: Yes (Death, Hospitalization, Other)
  Sender: FDA-Public Use
  Company Number: CA-BRISTOL-MYERS SQUIBB COMPANY-15195506

PATIENT
  Age: 58 Year
  Sex: Female

DRUGS (19)
  1. RABEPRAZOLE SODIUM [Concomitant]
  2. ADALAT [Concomitant]
  3. FLEXERIL [Concomitant]
  4. VITAMIN D [Concomitant]
  5. NPH INSULIN [Concomitant]
     Dosage: INSULIN
  6. PERCOCET [Concomitant]
  7. ORENCIA [Suspect]
     Indication: RHEUMATOID ARTHRITIS
     Dosage: NO OF INFUSIONS:3 INTP:JULY10 RESTARTED:21DEC11 LAST INF:9JAN12,28MAR12
     Route: 042
     Dates: start: 20100708
  8. ARAVA [Concomitant]
  9. IRON [Concomitant]
     Dosage: ALSO 300MG,BID.
  10. ALTACE [Concomitant]
  11. VITAMIN B-12 [Concomitant]
     Dosage: INJECTION
  12. HUMIRA [Concomitant]
  13. TYLENOL [Concomitant]
  14. BISOPROLOL FUMARATE [Concomitant]
  15. PREDNISONE TAB [Concomitant]
  16. VIOKASE 16 [Concomitant]
  17. PREZISTA [Concomitant]
  18. PANTOPRAZOLE SODIUM [Concomitant]
  19. IBUPROFEN [Concomitant]

REACTIONS (10)
  - DIARRHOEA [None]
  - NAUSEA [None]
  - CYSTITIS [None]
  - DEHYDRATION [None]
  - CARDIAC ARREST [None]
  - PARALYSIS [None]
  - ASTHENIA [None]
  - LOCALISED INFECTION [None]
  - RHEUMATOID ARTHRITIS [None]
  - KIDNEY INFECTION [None]
